FAERS Safety Report 8559424-3 (Version None)
Quarter: 2012Q3

REPORT INFORMATION
  Report Type: 
  Country: None (occurrence: None)
  Receive Date: 20120802
  Receipt Date: 20120724
  Transmission Date: 20120928
  Serious: Yes (Hospitalization, Other)
  Sender: FDA-Public Use
  Company Number: NL-GENZYME-CLOF-1002218

PATIENT
  Sex: Male
  Weight: 68 kg

DRUGS (4)
  1. VALACICLOVIR [Concomitant]
     Indication: PROPHYLAXIS
     Dosage: 500 MG, UNK
     Route: 065
     Dates: start: 20120530
  2. CLOFARABINE [Suspect]
     Indication: ACUTE MYELOID LEUKAEMIA
     Dosage: 18 MG, UNK
     Route: 042
     Dates: start: 20120625
  3. CYTARABINE [Suspect]
     Indication: ACUTE MYELOID LEUKAEMIA
     Dosage: 3600 MG, UNK
     Route: 042
     Dates: start: 20120625
  4. AMSACRINE [Suspect]
     Indication: ACUTE MYELOID LEUKAEMIA
     Dosage: 220 MG, UNK
     Route: 042
     Dates: start: 20120628

REACTIONS (12)
  - REFLEXES ABNORMAL [None]
  - EXTENSOR PLANTAR RESPONSE [None]
  - VOMITING [None]
  - DYSPNOEA [None]
  - EMOTIONAL DISORDER [None]
  - CSF PRESSURE INCREASED [None]
  - LUNG CONSOLIDATION [None]
  - HYPERREFLEXIA [None]
  - NAUSEA [None]
  - ENCEPHALOPATHY [None]
  - LETHARGY [None]
  - RESPIRATORY FAILURE [None]
